FAERS Safety Report 4819121-4 (Version None)
Quarter: 2005Q4

REPORT INFORMATION
  Report Type: 
  Country: None (occurrence: None)
  Receive Date: 20051103
  Receipt Date: 20051024
  Transmission Date: 20060501
  Serious: Yes (Hospitalization)
  Sender: FDA-Public Use
  Company Number: 2005UW16044

PATIENT
  Age: 37 Year
  Sex: Male

DRUGS (5)
  1. SEROQUEL [Suspect]
     Indication: MOOD SWINGS
     Route: 048
     Dates: start: 20051004
  2. LEXAPRO [Interacting]
     Indication: DEPRESSION
     Route: 048
     Dates: start: 20050921, end: 20050927
  3. LEXAPRO [Interacting]
     Indication: ANXIETY
     Route: 048
     Dates: start: 20050921, end: 20050927
  4. LEXAPRO [Interacting]
     Route: 048
     Dates: start: 20050928
  5. LEXAPRO [Interacting]
     Route: 048
     Dates: start: 20050928

REACTIONS (3)
  - BLOOD BILIRUBIN INCREASED [None]
  - BLOOD SODIUM DECREASED [None]
  - DRUG INTERACTION [None]
